FAERS Safety Report 10185177 (Version 1)
Quarter: 2014Q2

REPORT INFORMATION
  Report Type: Spontaneous
  Country: JP (occurrence: JP)
  Receive Date: 20140521
  Receipt Date: 20140521
  Transmission Date: 20141212
  Serious: Yes (Death)
  Sender: FDA-Public Use
  Company Number: PHJP2014JP000785

PATIENT
  Age: 86 Year
  Sex: Male
  Weight: 52 kg

DRUGS (27)
  1. TEGRETOL TAB 200MG [Suspect]
     Indication: CONVULSION
     Dosage: 400 MG, BID
     Route: 048
     Dates: start: 20140220
  2. PHENOBAL [Suspect]
     Indication: CONVULSION
     Dosage: 20 MG, TID
     Route: 048
     Dates: start: 20140220, end: 20140330
  3. E KEPPRA [Suspect]
     Indication: CONVULSION
     Dosage: 750 MG, BID
     Route: 048
     Dates: start: 20140220
  4. LAMICTAL [Suspect]
     Indication: CONVULSION
     Dosage: 25 MG, QD
     Route: 048
     Dates: start: 20140309, end: 20140313
  5. LAMICTAL [Suspect]
     Dosage: 50 MG, BID
     Route: 048
     Dates: start: 20140314, end: 20140316
  6. LAMICTAL [Suspect]
     Dosage: 100 MG, BID
     Route: 048
     Dates: start: 20140317, end: 20140323
  7. LAMICTAL [Suspect]
     Dosage: 300 MG, UNK
     Route: 048
     Dates: start: 20140324, end: 20140328
  8. ALEVIATIN [Suspect]
     Indication: CONVULSION
     Dosage: 100 MG, BID
     Route: 048
     Dates: start: 20140328
  9. ALEVIATIN [Suspect]
     Indication: CONVULSION
     Dosage: UNK UKN, UNK
     Route: 065
     Dates: start: 20140220, end: 20140327
  10. ZOSYN [Suspect]
     Indication: PNEUMONIA ASPIRATION
     Dosage: 2.25 G, QID
     Route: 042
     Dates: start: 20140301, end: 20140331
  11. FOSTOIN [Concomitant]
     Indication: CONVULSION
     Dosage: UNK UKN, UNK
     Route: 065
     Dates: start: 20140309
  12. FUROSEMIDE [Concomitant]
     Dosage: UNK UKN, UNK
     Route: 048
  13. THEODUR [Concomitant]
     Dosage: UNK UKN, UNK
     Route: 048
  14. ZYLORIC [Concomitant]
     Dosage: UNK UKN, UNK
     Route: 048
  15. METHYCOBAL [Concomitant]
     Dosage: UNK UKN, UNK
     Route: 048
  16. MIYA-BM [Concomitant]
     Dosage: UNK UKN, UNK
     Route: 048
  17. ALLOID [Concomitant]
     Dosage: UNK UKN, UNK
     Route: 048
  18. TELBANS [Concomitant]
     Dosage: UNK UKN, UNK
     Route: 048
  19. MILMAG [Concomitant]
     Dosage: UNK UKN, UNK
     Route: 048
  20. TAKEPRON [Concomitant]
     Dosage: UNK UKN, UNK
     Route: 048
  21. GLUCONSAN K [Concomitant]
     Dosage: UNK UKN, UNK
     Route: 048
  22. SODIUM CHLORIDE [Concomitant]
     Dosage: UNK UKN, UNK
     Route: 065
  23. KALIMATE [Concomitant]
     Dosage: UNK UKN, UNK
     Route: 048
  24. MUCOFILIN [Concomitant]
     Dosage: UNK UKN, UNK
     Route: 055
  25. TOPSYM [Concomitant]
     Dosage: UNK UKN, UNK
     Route: 065
  26. BFLUID [Concomitant]
     Dosage: UNK UKN, UNK
     Route: 065
  27. VERAPAMIL HYDROCHLORIDE [Concomitant]
     Dosage: UNK UKN, UNK
     Route: 042

REACTIONS (7)
  - Cardiac failure congestive [Fatal]
  - Pneumonia aspiration [Fatal]
  - Respiratory rate decreased [Fatal]
  - Drug eruption [Not Recovered/Not Resolved]
  - Erythema multiforme [Recovering/Resolving]
  - Rash [Recovering/Resolving]
  - Pyrexia [Not Recovered/Not Resolved]
